FAERS Safety Report 10363327 (Version 1)
Quarter: 2014Q3

REPORT INFORMATION
  Report Type: Report from Study
  Country: US (occurrence: US)
  Receive Date: 20140805
  Receipt Date: 20140805
  Transmission Date: 20150326
  Serious: Yes (Other)
  Sender: FDA-Public Use
  Company Number: PHEH2014US015127

PATIENT
  Age: 37 Year
  Sex: Female

DRUGS (30)
  1. XANAX [Concomitant]
     Active Substance: ALPRAZOLAM
     Dosage: 1 MG, BID AS NEEDED
     Route: 048
  2. ZITHROMAX [Concomitant]
     Active Substance: AZITHROMYCIN DIHYDRATE
     Dosage: 500 MG, TAKE ON MONDAY,WEDNESDAY,FRIDAY
  3. BACTRIM DS [Concomitant]
     Active Substance: SULFAMETHOXAZOLE\TRIMETHOPRIM
     Dosage: 1 DF, BID
     Route: 048
  4. CREON [Concomitant]
     Active Substance: PANCRELIPASE AMYLASE\PANCRELIPASE LIPASE\PANCRELIPASE PROTEASE
     Dosage: 4 DF WITH MEALS AND 2 DF WITH SNACKS
     Route: 048
  5. XOPENEX [Concomitant]
     Active Substance: LEVALBUTEROL HYDROCHLORIDE
     Dosage: 3 ML, Q6H AS NEEDED
     Route: 055
  6. ATIVAN [Concomitant]
     Active Substance: LORAZEPAM
     Dosage: 1 DF, MAY REPEAT IN 30 MIN
     Route: 048
  7. ADVAIR HFA [Concomitant]
     Active Substance: FLUTICASONE PROPIONATE\SALMETEROL XINAFOATE
     Dosage: 1 DF, INTO LUNGS EVERY 12 HOURS
     Route: 055
  8. CARDIZEM [Concomitant]
     Active Substance: DILTIAZEM HYDROCHLORIDE
     Dosage: 1 DF, QID
     Route: 048
  9. ZOFRAN [Concomitant]
     Active Substance: ONDANSETRON HYDROCHLORIDE
     Dosage: UNK
  10. OMNARIS [Concomitant]
     Active Substance: CICLESONIDE
     Dosage: 2 DF, DAILY (BY EACH NASAL ROUTE D)
     Route: 045
  11. PULMOZYME [Concomitant]
     Active Substance: DORNASE ALFA
     Dosage: 2.5 MG, DAILY
     Route: 055
  12. YASMIN [Concomitant]
     Active Substance: DROSPIRENONE\ETHINYL ESTRADIOL
     Dosage: 1 DF, DAILY
     Route: 048
  13. IRON [Concomitant]
     Active Substance: IRON
     Dosage: 325 MG, DAILY
     Route: 048
  14. ALLEGRA [Concomitant]
     Active Substance: FEXOFENADINE HYDROCHLORIDE
     Dosage: 180 MG, DAILY
     Route: 048
  15. TORADOL [Concomitant]
     Active Substance: KETOROLAC TROMETHAMINE
     Dosage: UNK
  16. ULTRAM [Concomitant]
     Active Substance: TRAMADOL HYDROCHLORIDE
     Dosage: 50 MG, Q6H AS NEEDED
     Route: 048
  17. SODIUM CHLORIDE. [Concomitant]
     Active Substance: SODIUM CHLORIDE
     Dosage: 3 ML, BID
     Route: 055
  18. CHLOR-TRIMETON [Concomitant]
     Active Substance: CHLORPHENIRAMINE MALEATE
     Dosage: 4 MG, Q6H AS NEEDED
     Route: 048
  19. TOBI PODHALER [Suspect]
     Active Substance: TOBRAMYCIN
     Dosage: 4 DF, (4 CAPSULES INTO LUNGS EVERY 12 HOURS, FOR 28 DAYS ON)
     Route: 055
  20. VIBRAMYCIN [Concomitant]
     Active Substance: DOXYCYCLINE
     Dosage: 100 MG, BID (FOR 4 WEEKS, REPEAT EVERY OTHER MONTH)
     Route: 048
  21. VALTREX [Concomitant]
     Active Substance: VALACYCLOVIR HYDROCHLORIDE
     Dosage: UKN, PRN
  22. PROTONIX [Concomitant]
     Active Substance: PANTOPRAZOLE SODIUM
     Dosage: 1 DF, BID
     Route: 048
  23. SINUS RINSE [Concomitant]
     Dosage: 1 DF, BID
     Route: 045
  24. AMBIEN [Concomitant]
     Active Substance: ZOLPIDEM TARTRATE
     Dosage: 5 MG, PRN
     Route: 048
  25. PROBIOTIC ORAL [Concomitant]
     Dosage: UNK, DAILY
     Route: 048
  26. TOBI [Suspect]
     Active Substance: TOBRAMYCIN
     Indication: CYSTIC FIBROSIS
     Dosage: 300 MG/5 ML TWICE A DAY
     Route: 055
     Dates: end: 201308
  27. CLARITIN-D 12 HOUR [Concomitant]
     Active Substance: LORATADINE\PSEUDOEPHEDRINE SULFATE
     Indication: HYPERSENSITIVITY
     Dosage: 1 DF, DAILY AS NEEDED
     Route: 048
  28. QUESTRAN [Concomitant]
     Active Substance: CHOLESTYRAMINE
     Dosage: 1 PACKET, TID
  29. PROAIR HFA [Concomitant]
     Active Substance: ALBUTEROL SULFATE
     Indication: WHEEZING
     Dosage: 2 DF, Q6H AS NEEDED
  30. VITAMIN D3 [Concomitant]
     Active Substance: CHOLECALCIFEROL
     Dosage: 50000 U, UNK
     Route: 048

REACTIONS (10)
  - Pseudomonas infection [Unknown]
  - Chronic sinusitis [Unknown]
  - White blood cell count increased [Unknown]
  - Haemoglobin decreased [Unknown]
  - Staphylococcal infection [Unknown]
  - Osteopenia [Unknown]
  - Haematocrit decreased [Unknown]
  - Increased viscosity of nasal secretion [Recovering/Resolving]
  - Cystic fibrosis [Unknown]
  - Pancreatic insufficiency [Unknown]

NARRATIVE: CASE EVENT DATE: 20130710
